FAERS Safety Report 6963827-8 (Version None)
Quarter: 2010Q3

REPORT INFORMATION
  Report Type: 
  Country: None (occurrence: None)
  Receive Date: 20100830
  Receipt Date: 20100813
  Transmission Date: 20110219
  Serious: Yes (Death)
  Sender: FDA-Public Use
  Company Number: 2010003399

PATIENT
  Age: 69 Year
  Sex: Male

DRUGS (7)
  1. TARCEVA [Suspect]
     Indication: HEPATIC CANCER METASTATIC
     Dosage: ORAL
     Route: 048
     Dates: start: 20091014
  2. SORAFENIB [Suspect]
     Indication: HEPATIC CANCER METASTATIC
     Dosage: 2 IN 1 D, ORAL
     Route: 048
     Dates: start: 20091014
  3. ALDACTONE [Concomitant]
  4. AMLODIPINE BESYLATE [Concomitant]
  5. BISOPROLOL FUMARATE [Concomitant]
  6. OMEPRAZOLE [Concomitant]
  7. SINTROM [Concomitant]

REACTIONS (1)
  - DRUG ERUPTION [None]
